FAERS Safety Report 10905531 (Version 2)
Quarter: 2015Q2

REPORT INFORMATION
  Report Type: Spontaneous
  Country: US (occurrence: US)
  Receive Date: 20150311
  Receipt Date: 20150616
  Transmission Date: 20150821
  Serious: Yes (Hospitalization, Other)
  Sender: FDA-Public Use
  Company Number: US-PFIZER INC-2015087090

PATIENT
  Age: 77 Year
  Sex: Female

DRUGS (2)
  1. CELEBREX [Suspect]
     Active Substance: CELECOXIB
     Indication: PAIN
     Dosage: UNK
     Dates: end: 20150430
  2. CELEBREX [Suspect]
     Active Substance: CELECOXIB
     Indication: DYSKINESIA

REACTIONS (8)
  - Cardiac valve disease [Recovering/Resolving]
  - Arthralgia [Unknown]
  - Cerebrovascular accident [Recovered/Resolved]
  - Pain [Recovered/Resolved]
  - Sleep apnoea syndrome [Unknown]
  - Amnesia [Recovered/Resolved]
  - Cardiac failure [Unknown]
  - Mitral valve stenosis [Unknown]
